FAERS Safety Report 11434662 (Version 1)
Quarter: 2015Q3

REPORT INFORMATION
  Report Type: Spontaneous
  Country: US (occurrence: None)
  Receive Date: 20150828
  Receipt Date: 20150828
  Transmission Date: 20151125
  Serious: Yes (Hospitalization)
  Sender: FDA-Public Use
  Company Number: None

PATIENT
  Age: 43 Year
  Sex: Female

DRUGS (1)
  1. GILENYA [Suspect]
     Active Substance: FINGOLIMOD HYDROCHLORIDE
     Indication: LIBIDO DECREASED
     Route: 048
     Dates: start: 20150112, end: 20150826

REACTIONS (1)
  - Chest pain [None]

NARRATIVE: CASE EVENT DATE: 20150824
